FAERS Safety Report 24806092 (Version 1)
Quarter: 2025Q1

REPORT INFORMATION
  Report Type: Spontaneous
  Country: CN (occurrence: CN)
  Receive Date: 20250103
  Receipt Date: 20250103
  Transmission Date: 20250408
  Serious: Yes (Other)
  Sender: PURDUE
  Company Number: CN-NAPPMUNDI-GBR-2024-0122489

PATIENT
  Age: 73 Year
  Sex: Female
  Weight: 62 kg

DRUGS (2)
  1. OXYCODONE HYDROCHLORIDE [Suspect]
     Active Substance: OXYCODONE HYDROCHLORIDE
     Indication: Tumour pain
     Dosage: 30 MILLIGRAM, BID
     Route: 048
     Dates: start: 20241222, end: 20241223
  2. PREGABALIN [Suspect]
     Active Substance: PREGABALIN
     Indication: Tumour pain
     Dosage: 75 MILLIGRAM, BID
     Route: 048
     Dates: start: 20241222, end: 20241227

REACTIONS (7)
  - Dizziness [Recovering/Resolving]
  - Night sweats [Recovering/Resolving]
  - Dysuria [Recovering/Resolving]
  - Somnolence [Recovering/Resolving]
  - Nausea [Recovering/Resolving]
  - Vomiting [Recovering/Resolving]
  - Labelled drug-drug interaction issue [Unknown]

NARRATIVE: CASE EVENT DATE: 20241222
